FAERS Safety Report 4686985-7 (Version None)
Quarter: 2005Q2

REPORT INFORMATION
  Report Type: 
  Country: None (occurrence: None)
  Receive Date: 20050608
  Receipt Date: 20050526
  Transmission Date: 20051028
  Serious: Yes (Hospitalization)
  Sender: FDA-Public Use
  Company Number: CERZ-10904

PATIENT
  Age: 19 Year
  Sex: Female
  Weight: 29.9374 kg

DRUGS (1)
  1. CEREZYME [Suspect]
     Indication: GAUCHER'S DISEASE
     Dosage: 1800 UNTIS Q2WKS IV
     Route: 042
     Dates: start: 20041028

REACTIONS (4)
  - ASTHENIA [None]
  - FAILURE TO THRIVE [None]
  - ORAL INTAKE REDUCED [None]
  - WEIGHT DECREASED [None]
